FAERS Safety Report 5181996-X (Version None)
Quarter: 2006Q4

REPORT INFORMATION
  Report Type: 
  Country: None (occurrence: None)
  Receive Date: 20061220
  Receipt Date: 20060417
  Transmission Date: 20070319
  Serious: No
  Sender: FDA-Public Use
  Company Number: US-GLAXOSMITHKLINE-A0602014A

PATIENT
  Age: 52 Year
  Sex: Female
  Weight: 45 kg

DRUGS (3)
  1. COMMIT [Suspect]
     Dates: start: 20060417
  2. NICODERM CQ [Suspect]
  3. ALLEGRA [Concomitant]

REACTIONS (3)
  - NERVOUSNESS [None]
  - ORAL DISCOMFORT [None]
  - PSYCHOMOTOR HYPERACTIVITY [None]
